FAERS Safety Report 13278008 (Version 1)
Quarter: 2017Q1

REPORT INFORMATION
  Report Type: Spontaneous
  Country: FR (occurrence: FR)
  Receive Date: 20170228
  Receipt Date: 20170228
  Transmission Date: 20170428
  Serious: Yes (Other)
  Sender: FDA-Public Use
  Company Number: FR-IPSEN BIOPHARMACEUTICALS, INC.-2017-01587

PATIENT
  Age: 53 Year
  Sex: Male
  Weight: 70 kg

DRUGS (10)
  1. AMLOR [Concomitant]
     Active Substance: AMLODIPINE BESYLATE
  2. TOPALGIC LP [Concomitant]
     Active Substance: TRAMADOL
  3. DYSPORT 500 UNITES SPEYWOOD [Suspect]
     Active Substance: ABOBOTULINUMTOXINA
     Indication: MUSCLE SPASTICITY
     Dosage: 1380 UNITS
     Route: 030
     Dates: start: 20161208, end: 20161208
  4. KARDEGIC [Concomitant]
     Active Substance: ASPIRIN LYSINE
  5. DYSPORT 500 UNITES SPEYWOOD [Suspect]
     Active Substance: ABOBOTULINUMTOXINA
     Indication: MUSCLE SPASTICITY
  6. TAHOR [Concomitant]
     Active Substance: ATORVASTATIN CALCIUM
  7. DYSPORT 500 UNITES SPEYWOOD [Suspect]
     Active Substance: ABOBOTULINUMTOXINA
     Indication: MUSCLE SPASTICITY
  8. SERESTA [Concomitant]
     Active Substance: OXAZEPAM
  9. LYRICA [Concomitant]
     Active Substance: PREGABALIN
  10. BACLOFENE [Concomitant]
     Active Substance: BACLOFEN

REACTIONS (1)
  - Epilepsy [Recovered/Resolved]

NARRATIVE: CASE EVENT DATE: 20170201
